FAERS Safety Report 23502903 (Version 1)
Quarter: 2024Q1

REPORT INFORMATION
  Report Type: Spontaneous
  Country: US (occurrence: US)
  Receive Date: 20240208
  Receipt Date: 20240208
  Transmission Date: 20240409
  Serious: No
  Sender: FDA-Public Use
  Company Number: US-INTRA-CELLULAR THERAPIES, INC.-2023ICT01320

PATIENT
  Age: 26 Year
  Sex: Female

DRUGS (3)
  1. CAPLYTA [Suspect]
     Active Substance: LUMATEPERONE
     Indication: Bipolar II disorder
     Dosage: 42 MG
  2. CAPLYTA [Suspect]
     Active Substance: LUMATEPERONE
     Indication: Bipolar disorder
  3. LAMICTAL [Concomitant]
     Active Substance: LAMOTRIGINE

REACTIONS (5)
  - Migraine [Unknown]
  - Dizziness [Unknown]
  - Somnolence [Unknown]
  - Nausea [Unknown]
  - Unevaluable event [Unknown]
